FAERS Safety Report 6071971-5 (Version None)
Quarter: 2009Q1

REPORT INFORMATION
  Report Type: 
  Country: None (occurrence: None)
  Receive Date: 20090205
  Receipt Date: 20090205
  Transmission Date: 20090719
  Serious: Yes (Hospitalization)
  Sender: FDA-Public Use
  Company Number: None

PATIENT
  Sex: Female
  Weight: 3.1752 kg

DRUGS (2)
  1. SYNAGIS [Suspect]
     Indication: ANTIVIRAL PROPHYLAXIS
     Dosage: 15 MG / KG EVERY 4 WEEKS IM
     Route: 030
     Dates: start: 20081126, end: 20081126
  2. SYNAGIS [Suspect]
     Indication: ANTIVIRAL PROPHYLAXIS
     Dosage: 15 MG / KG EVERY 4 WEEKS IM
     Route: 030
     Dates: start: 20081231, end: 20081231

REACTIONS (1)
  - NASOPHARYNGITIS [None]
